FAERS Safety Report 6933051-3 (Version None)
Quarter: 2010Q3

REPORT INFORMATION
  Report Type: 
  Country: None (occurrence: None)
  Receive Date: 20100818
  Receipt Date: 20100818
  Transmission Date: 20110219
  Serious: Yes (Life-Threatening, Hospitalization)
  Sender: FDA-Public Use
  Company Number: None

PATIENT
  Age: 55 Year
  Sex: Female
  Weight: 89 kg

DRUGS (14)
  1. LISINOPRIL [Suspect]
     Indication: HYPERTENSION
     Dosage: 20 MG DAILY ORAL
     Route: 048
  2. AMLODIPINE BESYLATE AND BENAZEPRIL HCL [Suspect]
     Indication: HYPERTENSION
     Dosage: 5MG/20MG DAILY ORAL
     Route: 048
  3. ACYCLOVIR [Concomitant]
  4. TRIFLURIDINE [Concomitant]
  5. GENTAMICIN [Concomitant]
  6. OPHTHALMIC SOLUTION [Concomitant]
  7. METFORMIN [Concomitant]
  8. GLIPIZIDE [Concomitant]
  9. ASPIRIN [Concomitant]
  10. ONE-A-DAY WOMEN'S FORMULA MULTIVITAMIN [Concomitant]
  11. LOPRESSOR [Concomitant]
  12. ROSUVASTATIN [Concomitant]
  13. COD LIVER OIL [Concomitant]
  14. VITAMIN B COMPLEX CAP [Concomitant]

REACTIONS (6)
  - DROOLING [None]
  - EYE SWELLING [None]
  - PHARYNGEAL OEDEMA [None]
  - PRURITUS [None]
  - SWELLING FACE [None]
  - TONGUE OEDEMA [None]
